FAERS Safety Report 6730997-6 (Version None)
Quarter: 2010Q2

REPORT INFORMATION
  Report Type: 
  Country: None (occurrence: None)
  Receive Date: 20100514
  Receipt Date: 20100427
  Transmission Date: 20101027
  Serious: Yes (Hospitalization)
  Sender: FDA-Public Use
  Company Number: APP201000306

PATIENT
  Age: 8 Month
  Sex: Female

DRUGS (5)
  1. METHYLPREDNISOLONE SODIUM SUCCINATE [Suspect]
     Indication: ANAEMIA HAEMOLYTIC AUTOIMMUNE
     Dosage: 2 MG/KG, DAILY, INTRAVENOUS
     Route: 042
  2. RITUXIMAB (RITUXIMAB) [Suspect]
     Indication: ANAEMIA HAEMOLYTIC AUTOIMMUNE
     Dosage: 375 MG/M2, 1 IN 1 WK, INTRAVENOUS
     Route: 042
  3. PREDNISONE [Suspect]
     Indication: ANAEMIA HAEMOLYTIC AUTOIMMUNE
     Dosage: 2 MG/KG, DIALY, ORAL
     Route: 048
  4. COLIMICINE [Suspect]
     Indication: INTERSTITIAL LUNG DISEASE
  5. IMMUNE GLOBULIN (HUMAN) [Concomitant]

REACTIONS (14)
  - ACUTE RESPIRATORY DISTRESS SYNDROME [None]
  - ANAEMIA [None]
  - ANAEMIA HAEMOLYTIC AUTOIMMUNE [None]
  - DRUG DEPENDENCE [None]
  - INTERSTITIAL LUNG DISEASE [None]
  - JAUNDICE [None]
  - LETHARGY [None]
  - PALLOR [None]
  - PSEUDOMONAS INFECTION [None]
  - PULMONARY EMBOLISM [None]
  - PULMONARY HYPERTENSION [None]
  - PYREXIA [None]
  - THROMBOSIS IN DEVICE [None]
  - TREATMENT FAILURE [None]
